FAERS Safety Report 26025819 (Version 1)
Quarter: 2025Q4

REPORT INFORMATION
  Report Type: Report from Study
  Country: US (occurrence: US)
  Receive Date: 20251111
  Receipt Date: 20251111
  Transmission Date: 20260118
  Serious: Yes (Other)
  Sender: ROCHE
  Company Number: US-ROCHE-10000422261

PATIENT
  Age: 60 Year
  Sex: Female
  Weight: 79.2 kg

DRUGS (11)
  1. RITUXAN [Suspect]
     Active Substance: RITUXIMAB
     Indication: Dermatomyositis
     Dosage: INFUSE 1000 MG ON DAY 1 AND 15 THEN EVERY 6 MONTHS
     Route: 042
  2. RITUXAN [Suspect]
     Active Substance: RITUXIMAB
     Indication: Myopathy
  3. DIPHENHYDRAMINE [Concomitant]
     Active Substance: DIPHENHYDRAMINE
  4. VITAMINS [Concomitant]
     Active Substance: VITAMINS
  5. NEMLUVIO [Concomitant]
     Active Substance: NEMOLIZUMAB-ILTO
  6. ROSUVASTATIN [Concomitant]
     Active Substance: ROSUVASTATIN
  7. SOLU-MEDROL [Concomitant]
     Active Substance: METHYLPREDNISOLONE SODIUM SUCCINATE
  8. TYLENOL [Concomitant]
     Active Substance: ACETAMINOPHEN
  9. VEMLIDY [Concomitant]
     Active Substance: TENOFOVIR ALAFENAMIDE FUMARATE
  10. VITAMIN E [Concomitant]
     Active Substance: .ALPHA.-TOCOPHEROL
  11. SODIUM CHLORIDE [Concomitant]
     Active Substance: SODIUM CHLORIDE

REACTIONS (6)
  - Off label use [Unknown]
  - Arthritis [Unknown]
  - Muscle tightness [Unknown]
  - Pain [Unknown]
  - Musculoskeletal stiffness [Unknown]
  - Dermatomyositis [Unknown]
